FAERS Safety Report 4993726-2 (Version None)
Quarter: 2006Q2

REPORT INFORMATION
  Report Type: 
  Country: None (occurrence: None)
  Receive Date: 20060505
  Receipt Date: 20060425
  Transmission Date: 20061013
  Serious: Yes (Congenital Anomaly, Other)
  Sender: FDA-Public Use
  Company Number: US-JNJFOC-20060406266

PATIENT
  Sex: Male
  Weight: 3.4 kg

DRUGS (1)
  1. TOPAMAX [Suspect]

REACTIONS (2)
  - CLEFT PALATE [None]
  - DRUG EXPOSURE DURING PREGNANCY [None]
